FAERS Safety Report 12169078 (Version 1)
Quarter: 2016Q1

REPORT INFORMATION
  Report Type: Spontaneous
  Country: US (occurrence: US)
  Receive Date: 20160310
  Receipt Date: 20160310
  Transmission Date: 20160526
  Serious: No
  Sender: FDA-Public Use
  Company Number: US-PFIZER INC-2016146676

PATIENT
  Age: 88 Year
  Sex: Female
  Weight: 49.9 kg

DRUGS (1)
  1. ADVIL [Suspect]
     Active Substance: IBUPROFEN
     Dosage: 2 DF, 1X/DAY (AT NIGHT)
     Route: 048
     Dates: start: 20160306

REACTIONS (3)
  - Somnolence [Not Recovered/Not Resolved]
  - Middle insomnia [Unknown]
  - Sedation [Not Recovered/Not Resolved]

NARRATIVE: CASE EVENT DATE: 201603
